FAERS Safety Report 18958197 (Version 2)
Quarter: 2021Q1

REPORT INFORMATION
  Report Type: Report from Study
  Country: None (occurrence: BR)
  Receive Date: 20210302
  Receipt Date: 20210304
  Transmission Date: 20210420
  Serious: Yes (Disabling)
  Sender: FDA-Public Use
  Company Number: BR-ABBVIE-21K-020-3790599-00

PATIENT
  Age: 33 Year
  Sex: Female

DRUGS (2)
  1. SKYRIZI [Suspect]
     Active Substance: RISANKIZUMAB-RZAA
     Dosage: LOADING DOSE ? WEEK 04
     Route: 058
     Dates: start: 20210108, end: 20210108
  2. SKYRIZI [Suspect]
     Active Substance: RISANKIZUMAB-RZAA
     Indication: PSORIASIS
     Dosage: LOADING DOSE ? WEEK 00
     Route: 058
     Dates: start: 20201211, end: 20201211

REACTIONS (7)
  - Confusional state [Unknown]
  - Skin discolouration [Not Recovered/Not Resolved]
  - Limb injury [Not Recovered/Not Resolved]
  - Gait inability [Unknown]
  - Psoriasis [Unknown]
  - Wound [Not Recovered/Not Resolved]
  - Drug ineffective [Not Recovered/Not Resolved]

NARRATIVE: CASE EVENT DATE: 20201211
